FAERS Safety Report 5835891-0 (Version None)
Quarter: 2008Q3

REPORT INFORMATION
  Report Type: 
  Country: None (occurrence: None)
  Receive Date: 20080730
  Receipt Date: 20080305
  Transmission Date: 20090109
  Serious: Yes (Other)
  Sender: FDA-Public Use
  Company Number: 45871

PATIENT
  Age: 72 Year
  Sex: Female

DRUGS (1)
  1. PACLITAXEL [Suspect]
     Indication: BREAST CANCER
     Dosage: 260MG IV
     Route: 042
     Dates: start: 20080304

REACTIONS (3)
  - DYSPNOEA [None]
  - ERYTHEMA [None]
  - FLUSHING [None]
